FAERS Safety Report 25423152 (Version 1)
Quarter: 2025Q2

REPORT INFORMATION
  Report Type: Spontaneous
  Country: US (occurrence: US)
  Receive Date: 20250611
  Receipt Date: 20250611
  Transmission Date: 20250716
  Serious: No
  Sender: PIERRE FABRE MEDICAMENT
  Company Number: US-PFM-2024-05966

PATIENT
  Sex: Male
  Weight: 4.658 kg

DRUGS (2)
  1. HEMANGEOL [Suspect]
     Active Substance: PROPRANOLOL HYDROCHLORIDE
     Indication: Haemangioma
     Dosage: 0.5 ML, BID (2/DAY)
     Dates: start: 20241031
  2. HEMANGEOL [Suspect]
     Active Substance: PROPRANOLOL HYDROCHLORIDE
     Dosage: 1.1 ML, BID (2/DAY)

REACTIONS (6)
  - Feeling jittery [Unknown]
  - Respiratory rate increased [Unknown]
  - Infantile spitting up [Recovering/Resolving]
  - Somnolence [Unknown]
  - Product administered to patient of inappropriate age [Unknown]
  - Off label use [Unknown]
